FAERS Safety Report 23309338 (Version 3)
Quarter: 2025Q1

REPORT INFORMATION
  Report Type: Report from Study
  Country: CA (occurrence: CA)
  Receive Date: 20231218
  Receipt Date: 20250128
  Transmission Date: 20250408
  Serious: Yes (Other)
  Sender: TAKEDA
  Company Number: CA-TAKEDA-2023TUS117590

PATIENT
  Sex: Female

DRUGS (5)
  1. VEDOLIZUMAB [Suspect]
     Active Substance: VEDOLIZUMAB
     Indication: Colitis ulcerative
  2. VEDOLIZUMAB [Suspect]
     Active Substance: VEDOLIZUMAB
  3. VEDOLIZUMAB [Suspect]
     Active Substance: VEDOLIZUMAB
  4. METFORMIN [Concomitant]
     Active Substance: METFORMIN HYDROCHLORIDE
  5. INDAPAMIDE\PERINDOPRIL [Concomitant]
     Active Substance: INDAPAMIDE\PERINDOPRIL

REACTIONS (10)
  - Sinusitis [Unknown]
  - Decreased immune responsiveness [Unknown]
  - Bronchitis viral [Unknown]
  - Frequent bowel movements [Unknown]
  - Influenza like illness [Unknown]
  - Abdominal pain [Unknown]
  - Herpes zoster [Unknown]
  - Influenza [Unknown]
  - Cough [Unknown]
  - Oropharyngeal pain [Unknown]
